FAERS Safety Report 10172141 (Version 2)
Quarter: 2014Q2

REPORT INFORMATION
  Report Type: Spontaneous
  Country: CA (occurrence: CA)
  Receive Date: 20140515
  Receipt Date: 20140618
  Transmission Date: 20141212
  Serious: Yes (Other)
  Sender: FDA-Public Use
  Company Number: PHHY2014CA057923

PATIENT
  Age: 62 Year
  Sex: Male

DRUGS (4)
  1. LOPRESOR [Suspect]
     Indication: HYPERTENSION
     Dosage: 200 MG, DAILY
     Route: 048
     Dates: start: 20121227
  2. LOPRESOR [Suspect]
     Dosage: 200 MG, DAILY
     Route: 048
     Dates: end: 20140414
  3. LOPRESOR [Suspect]
     Dosage: 200MG DAILY
     Route: 048
  4. CIALIS [Concomitant]

REACTIONS (6)
  - Blood pressure increased [Recovered/Resolved]
  - Palpitations [Recovered/Resolved]
  - Malaise [Recovered/Resolved]
  - Chest discomfort [Recovered/Resolved]
  - Headache [Recovered/Resolved]
  - Drug ineffective [Unknown]
